FAERS Safety Report 9614923 (Version 3)
Quarter: 2013Q4

REPORT INFORMATION
  Report Type: Spontaneous
  Country: US (occurrence: US)
  Receive Date: 20131011
  Receipt Date: 20131204
  Transmission Date: 20140711
  Serious: Yes (Other)
  Sender: FDA-Public Use
  Company Number: US-PFIZER INC-2013289411

PATIENT
  Age: 67 Year
  Sex: Female

DRUGS (10)
  1. XELJANZ [Suspect]
     Indication: RHEUMATOID ARTHRITIS
     Dosage: 5 MG, 2X/DAY
     Route: 048
     Dates: start: 20130930
  2. XELJANZ [Suspect]
     Dosage: 5 MG, 1X/DAY
     Route: 048
     Dates: end: 20131007
  3. ALEVE [Concomitant]
     Dosage: 440MG (2 TABLETS) THREE TIMES A DAY
  4. CO Q-10 [Concomitant]
     Dosage: 30MG (1 TABLET) AS NEEDED
  5. DIAZEPAM [Concomitant]
     Dosage: 5MG (1 TABLET) AS NEEDED
  6. AMLODIPINE BESILATE [Concomitant]
     Dosage: 5MG AS NEEDED
  7. HYDROCODONE [Concomitant]
     Dosage: 500MG-10MG TABLET AT 1 TABLET TWICE DAILY
  8. KETOCONAZOLE [Concomitant]
     Dosage: 1 APP ONCE A DAY
     Route: 061
  9. ELIDEL [Concomitant]
     Dosage: 5G, 1 APP TWICE DAILY
  10. METRONIDAZOLE [Concomitant]
     Dosage: 1 APP TWICE DAILY
     Route: 061

REACTIONS (8)
  - Throat tightness [Unknown]
  - Chest discomfort [Unknown]
  - Blood pressure increased [Unknown]
  - Pharyngeal oedema [Unknown]
  - Dysphagia [Unknown]
  - Headache [Unknown]
  - Pain [Unknown]
  - Saliva altered [Unknown]
